FAERS Safety Report 18966403 (Version 2)
Quarter: 2021Q1

REPORT INFORMATION
  Report Type: Report from Study
  Country: CL (occurrence: CL)
  Receive Date: 20210303
  Receipt Date: 20210312
  Transmission Date: 20210420
  Serious: Yes (Hospitalization, Other)
  Sender: FDA-Public Use
  Company Number: CL-BIOGEN-2021BI00982486

PATIENT
  Age: 26 Year
  Sex: Female

DRUGS (1)
  1. TYSABRI [Suspect]
     Active Substance: NATALIZUMAB
     Indication: MULTIPLE SCLEROSIS
     Route: 042
     Dates: start: 20180801

REACTIONS (8)
  - Syncope [Recovered/Resolved]
  - Chest discomfort [Not Recovered/Not Resolved]
  - Urinary tract infection [Not Recovered/Not Resolved]
  - Pyelonephritis [Not Recovered/Not Resolved]
  - Renal atrophy [Unknown]
  - Nephropathy [Not Recovered/Not Resolved]
  - Reproductive tract disorder [Unknown]
  - Reproductive tract procedural complication [Not Recovered/Not Resolved]

NARRATIVE: CASE EVENT DATE: 2020
